FAERS Safety Report 7362007-4 (Version None)
Quarter: 2011Q1

REPORT INFORMATION
  Report Type: 
  Country: None (occurrence: None)
  Receive Date: 20110318
  Receipt Date: 20110314
  Transmission Date: 20110831
  Serious: Yes (Other)
  Sender: FDA-Public Use
  Company Number: US-ELI_LILLY_AND_COMPANY-US201102007320

PATIENT
  Age: 31 Year
  Sex: Female

DRUGS (6)
  1. METFORMIN HCL [Concomitant]
     Dates: end: 20100101
  2. BYETTA [Concomitant]
     Dosage: UNK, UNK
     Route: 058
     Dates: end: 20101001
  3. HUMALOG [Suspect]
     Indication: TYPE 2 DIABETES MELLITUS
     Dosage: 10 U, 3/D
     Dates: start: 20101001
  4. LEVOTHYROXINE SODIUM [Concomitant]
     Dosage: 150 UG, DAILY (1/D)
  5. HUMALOG [Suspect]
     Dosage: 30 U, EACH EVENING
     Dates: start: 20101001
  6. KEFLEX [Concomitant]
     Indication: NEUROGENIC BLADDER
     Dosage: 250 MG, DAILY (1/D)

REACTIONS (4)
  - PRE-ECLAMPSIA [None]
  - DRUG EXPOSURE DURING PREGNANCY [None]
  - PLACENTA PRAEVIA [None]
  - SKIN ULCER [None]
